FAERS Safety Report 14361155 (Version 1)
Quarter: 2018Q1

REPORT INFORMATION
  Report Type: Spontaneous
  Country: CA (occurrence: CA)
  Receive Date: 20180107
  Receipt Date: 20180107
  Transmission Date: 20180509
  Serious: Yes (Disabling, Other)
  Sender: FDA-Public Use
  Company Number: CA-CONCORDIA PHARMACEUTICALS INC.-GSH201801-000044

PATIENT
  Sex: Female

DRUGS (7)
  1. PLAQUENIL [Suspect]
     Active Substance: HYDROXYCHLOROQUINE SULFATE
     Indication: RHEUMATOID ARTHRITIS
     Route: 065
  2. METHOTREXATE. [Concomitant]
     Active Substance: METHOTREXATE
  3. OMEPRAZOLE. [Concomitant]
     Active Substance: OMEPRAZOLE
  4. HUMIRA [Concomitant]
     Active Substance: ADALIMUMAB
  5. TYLENOL [Concomitant]
     Active Substance: ACETAMINOPHEN
  6. APO-LEFLUNOMIDE [Suspect]
     Active Substance: LEFLUNOMIDE
     Indication: RHEUMATOID ARTHRITIS
     Route: 065
  7. CELEBREX [Concomitant]
     Active Substance: CELECOXIB

REACTIONS (10)
  - Gait disturbance [Unknown]
  - Insomnia [Unknown]
  - Peripheral swelling [Unknown]
  - Pain [Unknown]
  - Therapeutic response decreased [Unknown]
  - Diarrhoea [Unknown]
  - Meniere^s disease [Unknown]
  - Vertigo [Unknown]
  - Impaired work ability [Unknown]
  - Joint swelling [Unknown]
